FAERS Safety Report 10207750 (Version 1)
Quarter: 2014Q2

REPORT INFORMATION
  Report Type: Spontaneous
  Country: GB (occurrence: None)
  Receive Date: 20140527
  Receipt Date: 20140527
  Transmission Date: 20141212
  Serious: Yes (Other)
  Sender: FDA-Public Use
  Company Number: ABR_01656_2014

PATIENT
  Age: 58 Year
  Sex: Female

DRUGS (1)
  1. ERYTHROMYCIN [Suspect]
     Indication: SINUSITIS
     Route: 048
     Dates: start: 20140430, end: 20140502

REACTIONS (6)
  - Rash [None]
  - Urticaria [None]
  - Ocular hyperaemia [None]
  - Eye pruritus [None]
  - Nasal congestion [None]
  - Eye pain [None]
